FAERS Safety Report 23285057 (Version 2)
Quarter: 2024Q1

REPORT INFORMATION
  Report Type: Spontaneous
  Country: JP (occurrence: JP)
  Receive Date: 20231211
  Receipt Date: 20240207
  Transmission Date: 20240410
  Serious: Yes (Life-Threatening, Hospitalization, Other)
  Sender: FDA-Public Use
  Company Number: JP-BRISTOL-MYERS SQUIBB COMPANY-2023-177282

PATIENT
  Age: 58 Year
  Sex: Female

DRUGS (8)
  1. LENADEX [Suspect]
     Active Substance: DEXAMETHASONE ACETATE
     Indication: Plasma cell myeloma
     Dates: start: 202210
  2. LENADEX [Suspect]
     Active Substance: DEXAMETHASONE ACETATE
     Dates: start: 202212
  3. LENADEX [Suspect]
     Active Substance: DEXAMETHASONE ACETATE
     Dates: start: 202302
  4. LENADEX [Suspect]
     Active Substance: DEXAMETHASONE ACETATE
  5. LENADEX [Suspect]
     Active Substance: DEXAMETHASONE ACETATE
  6. POMALYST [Suspect]
     Active Substance: POMALIDOMIDE
     Indication: Plasma cell myeloma
     Dates: start: 202302
  7. ISATUXIMAB [Suspect]
     Active Substance: ISATUXIMAB
     Indication: Plasma cell myeloma
     Dates: start: 202302
  8. TOCILIZUMAB [Concomitant]
     Active Substance: TOCILIZUMAB
     Indication: Plasma cell myeloma

REACTIONS (4)
  - Cytokine release syndrome [Unknown]
  - Immune effector cell-associated neurotoxicity syndrome [Unknown]
  - Plasma cell myeloma [Unknown]
  - Cardio-respiratory arrest [Unknown]

NARRATIVE: CASE EVENT DATE: 20230101
